FAERS Safety Report 4383373-8 (Version None)
Quarter: 2004Q2

REPORT INFORMATION
  Report Type: 
  Country: None (occurrence: None)
  Receive Date: 20040618
  Receipt Date: 20040611
  Transmission Date: 20050107
  Serious: Yes (Death, Hospitalization)
  Sender: FDA-Public Use
  Company Number: KII-2001-0000140

PATIENT
  Age: 16 Year
  Sex: Male

DRUGS (1)
  1. OXYCONTIN [Suspect]

REACTIONS (2)
  - MEDICATION ERROR [None]
  - SELF-MEDICATION [None]
